FAERS Safety Report 6535762-0 (Version None)
Quarter: 2010Q1

REPORT INFORMATION
  Report Type: 
  Country: None (occurrence: None)
  Receive Date: 20100113
  Receipt Date: 20100106
  Transmission Date: 20100710
  Serious: Yes (Death)
  Sender: FDA-Public Use
  Company Number: US-BRACCO-003890

PATIENT
  Age: 66 Year
  Sex: Female

DRUGS (7)
  1. OXYGEN [Concomitant]
     Route: 055
     Dates: start: 20100105, end: 20100105
  2. ISOVUE-128 [Suspect]
     Indication: ABDOMINAL PAIN LOWER
     Route: 042
     Dates: start: 20100105, end: 20100105
  3. ISOVUE-128 [Suspect]
     Indication: COMPUTERISED TOMOGRAM
     Route: 042
     Dates: start: 20100105, end: 20100105
  4. PREDNISONE [Concomitant]
     Route: 048
     Dates: start: 20100105, end: 20100105
  5. PREDNISONE [Concomitant]
     Route: 048
     Dates: start: 20100104, end: 20100104
  6. BENADRYL [Concomitant]
     Route: 048
     Dates: start: 20100105, end: 20100105
  7. NORMAL SALINE [Concomitant]
     Route: 041
     Dates: start: 20100105, end: 20100105

REACTIONS (5)
  - CARDIAC ARREST [None]
  - DYSPNOEA [None]
  - HYPERHIDROSIS [None]
  - LOSS OF CONSCIOUSNESS [None]
  - RESPIRATORY ARREST [None]
